FAERS Safety Report 7078281-8 (Version None)
Quarter: 2010Q4

REPORT INFORMATION
  Report Type: 
  Country: None (occurrence: None)
  Receive Date: 20101101
  Receipt Date: 20101101
  Transmission Date: 20110411
  Serious: Yes (Hospitalization)
  Sender: FDA-Public Use
  Company Number: None

PATIENT
  Sex: Female
  Weight: 79 kg

DRUGS (3)
  1. DOXORUBICIN HYDROCHLORIDE [Suspect]
     Dosage: 135 MG
  2. PEG-L ASPARAGINASE (K- H) [Suspect]
     Dosage: 4500 MG
  3. VINCRISTINE SULFATE [Suspect]
     Dosage: 6 MG

REACTIONS (3)
  - CELLULITIS [None]
  - FEBRILE NEUTROPENIA [None]
  - SUBCUTANEOUS ABSCESS [None]
